FAERS Safety Report 9859604 (Version 2)
Quarter: 2014Q1

REPORT INFORMATION
  Report Type: Spontaneous
  Country: IT (occurrence: IT)
  Receive Date: 20140131
  Receipt Date: 20140221
  Transmission Date: 20141002
  Serious: Yes (Death, Other)
  Sender: FDA-Public Use
  Company Number: IT-CELGENEUS-083-50794-14013875

PATIENT
  Age: 76 Year
  Sex: Male

DRUGS (4)
  1. VIDAZA [Suspect]
     Indication: REFRACTORY ANAEMIA WITH AN EXCESS OF BLASTS
     Dosage: 36.25 MILLIGRAM
     Route: 065
     Dates: start: 20130610, end: 20130901
  2. VIDAZA [Suspect]
     Indication: REFRACTORY ANAEMIA WITH AN EXCESS OF BLASTS
  3. METOPROLOL [Concomitant]
     Indication: ANGINA PECTORIS
     Dosage: 200 MILLIGRAM
     Route: 065
     Dates: end: 20131012
  4. METOPROLOL [Concomitant]
     Indication: MYOCARDIAL ISCHAEMIA

REACTIONS (4)
  - Pneumonia [Fatal]
  - Platelet count decreased [Unknown]
  - White blood cell count decreased [Unknown]
  - Haemoglobin decreased [Unknown]
